FAERS Safety Report 24823926 (Version 2)
Quarter: 2025Q1

REPORT INFORMATION
  Report Type: Spontaneous
  Country: PT (occurrence: PT)
  Receive Date: 20250109
  Receipt Date: 20250129
  Transmission Date: 20250408
  Serious: Yes (Life-Threatening, Hospitalization, Other)
  Sender: AUROBINDO
  Company Number: PT-AUROBINDO-AUR-APL-2025-000559

PATIENT
  Age: 66 Year
  Sex: Male

DRUGS (3)
  1. AMITRIPTYLINE [Interacting]
     Active Substance: AMITRIPTYLINE
     Indication: Depressive symptom
     Route: 065
  2. BUSPIRONE [Interacting]
     Active Substance: BUSPIRONE HYDROCHLORIDE
     Indication: Depressive symptom
     Route: 065
  3. ZOLPIDEM [Interacting]
     Active Substance: ZOLPIDEM TARTRATE
     Indication: Depressive symptom
     Route: 065

REACTIONS (4)
  - Serotonin syndrome [Recovering/Resolving]
  - Poisoning deliberate [Unknown]
  - Intentional overdose [Recovering/Resolving]
  - Drug interaction [Recovering/Resolving]
